FAERS Safety Report 12539429 (Version 1)
Quarter: 2016Q3

REPORT INFORMATION
  Report Type: Spontaneous
  Country: FR (occurrence: FR)
  Receive Date: 20160708
  Receipt Date: 20160708
  Transmission Date: 20161109
  Serious: Yes (Hospitalization)
  Sender: FDA-Public Use
  Company Number: FR-ROCHE-1788524

PATIENT
  Age: 74 Year
  Sex: Female

DRUGS (4)
  1. CELLCEPT [Suspect]
     Active Substance: MYCOPHENOLATE MOFETIL\MYCOPHENOLATE MOFETIL HYDROCHLORIDE
     Indication: MICROSCOPIC POLYANGIITIS
     Dosage: TABLET, 500 MG
     Route: 048
     Dates: start: 20160224, end: 20160422
  2. CELLCEPT [Suspect]
     Active Substance: MYCOPHENOLATE MOFETIL\MYCOPHENOLATE MOFETIL HYDROCHLORIDE
     Route: 048
  3. MABTHERA [Suspect]
     Active Substance: RITUXIMAB
     Route: 041
     Dates: start: 20160209
  4. MABTHERA [Suspect]
     Active Substance: RITUXIMAB
     Indication: MICROSCOPIC POLYANGIITIS
     Dosage: 2 ADMINISTRATIONS, DRIP SOLUTION, 500 MG
     Route: 041
     Dates: start: 20160202

REACTIONS (2)
  - Bronchopulmonary aspergillosis [Recovered/Resolved]
  - Histiocytosis haematophagic [Recovered/Resolved]

NARRATIVE: CASE EVENT DATE: 20160401
